FAERS Safety Report 5019287-X (Version None)
Quarter: 2006Q2

REPORT INFORMATION
  Report Type: 
  Country: None (occurrence: None)
  Receive Date: 20060606
  Receipt Date: 20050727
  Transmission Date: 20061013
  Serious: Yes (Hospitalization, Disabling)
  Sender: FDA-Public Use
  Company Number: US-ROCHE-412370

PATIENT
  Age: 20 Year
  Sex: Female
  Weight: 68 kg

DRUGS (2)
  1. ACCUTANE [Suspect]
     Indication: ACNE
     Route: 048
     Dates: start: 19990715, end: 19990915
  2. IBUPROFEN [Concomitant]

REACTIONS (16)
  - ANAL FISSURE [None]
  - ANHEDONIA [None]
  - ANXIETY [None]
  - COLITIS [None]
  - COLITIS ULCERATIVE [None]
  - GASTROINTESTINAL DISORDER [None]
  - HAEMORRHOIDS [None]
  - INFLAMMATORY BOWEL DISEASE [None]
  - INTESTINAL HAEMORRHAGE [None]
  - IRON DEFICIENCY ANAEMIA [None]
  - IRRITABLE BOWEL SYNDROME [None]
  - LUNG NEOPLASM [None]
  - MICROCYTIC ANAEMIA [None]
  - MULTI-ORGAN DISORDER [None]
  - PNEUMONITIS [None]
  - THROMBOCYTHAEMIA [None]
